FAERS Safety Report 9725363 (Version 1)
Quarter: 2013Q4

REPORT INFORMATION
  Report Type: Spontaneous
  Country: JP (occurrence: JP)
  Receive Date: 20131203
  Receipt Date: 20131203
  Transmission Date: 20140711
  Serious: Yes (Hospitalization)
  Sender: FDA-Public Use
  Company Number: JP-AMGEN-JPNSP2013084550

PATIENT
  Sex: 0

DRUGS (2)
  1. VECTIBIX [Suspect]
     Indication: COLON CANCER
     Dosage: UNK UNK, UNK
     Route: 041
     Dates: start: 20131122
  2. ANTIHISTAMINES [Concomitant]
     Dosage: UNK UNK, UNK
     Route: 048

REACTIONS (1)
  - Anaphylactic shock [Recovering/Resolving]
